FAERS Safety Report 4936698-9 (Version None)
Quarter: 2006Q1

REPORT INFORMATION
  Report Type: 
  Country: None (occurrence: None)
  Receive Date: 20060303
  Receipt Date: 20060223
  Transmission Date: 20060701
  Serious: Yes (Death)
  Sender: FDA-Public Use
  Company Number: MC200600163

PATIENT
  Age: 74 Year

DRUGS (3)
  1. ANGIOX (BIVALIRUDIN) INJECTION [Suspect]
  2. ASPIRIN [Concomitant]
  3. PLAVIX [Concomitant]

REACTIONS (7)
  - AORTIC ANEURYSM REPAIR [None]
  - CARDIOGENIC SHOCK [None]
  - DEVICE FAILURE [None]
  - ELECTROCARDIOGRAM ST SEGMENT DEPRESSION [None]
  - MYOCARDIAL INFARCTION [None]
  - POST PROCEDURAL COMPLICATION [None]
  - VENTRICULAR DYSFUNCTION [None]
